FAERS Safety Report 4953911-2 (Version None)
Quarter: 2006Q1

REPORT INFORMATION
  Report Type: 
  Country: None (occurrence: None)
  Receive Date: 20060323
  Receipt Date: 20060323
  Transmission Date: 20060701
  Serious: No
  Sender: FDA-Public Use
  Company Number: None

PATIENT
  Age: 49 Year
  Sex: Female
  Weight: 61 kg

DRUGS (1)
  1. FERRLECIT [Suspect]
     Indication: ANAEMIA
     Dosage: 250 MG IV OVER 2 HOURS IV
     Route: 042
     Dates: start: 20060320

REACTIONS (4)
  - ADVERSE DRUG REACTION [None]
  - ARTHRALGIA [None]
  - DRUG HYPERSENSITIVITY [None]
  - JOINT SWELLING [None]
